FAERS Safety Report 23247593 (Version 1)
Quarter: 2023Q4

REPORT INFORMATION
  Report Type: Report from Study
  Country: GB (occurrence: GB)
  Receive Date: 20231130
  Receipt Date: 20231130
  Transmission Date: 20240109
  Serious: Yes (Hospitalization, Other)
  Sender: FDA-Public Use
  Company Number: GB-IPSEN Group, Research and Development-2023-11301

PATIENT
  Age: 61 Year
  Sex: Female

DRUGS (1)
  1. LANREOTIDE ACETATE [Suspect]
     Active Substance: LANREOTIDE ACETATE
     Indication: Neuroendocrine tumour
     Route: 065

REACTIONS (14)
  - Faecaloma [Unknown]
  - Pyrexia [Unknown]
  - Nausea [Unknown]
  - Fatigue [Recovered/Resolved]
  - Abdominal discomfort [Unknown]
  - Constipation [Recovered/Resolved]
  - Alopecia [Unknown]
  - Dry skin [Unknown]
  - Rash [Unknown]
  - Flushing [Unknown]
  - Dry mouth [Unknown]
  - Dizziness [Unknown]
  - Headache [Unknown]
  - Abdominal discomfort [Recovered/Resolved]

NARRATIVE: CASE EVENT DATE: 20230601
